FAERS Safety Report 9425028 (Version 1)
Quarter: 2013Q3

REPORT INFORMATION
  Report Type: Spontaneous
  Country: US (occurrence: US)
  Receive Date: 20130729
  Receipt Date: 20130729
  Transmission Date: 20140515
  Serious: Yes (Other)
  Sender: FDA-Public Use
  Company Number: US-PFIZER INC-2013219071

PATIENT
  Sex: 0

DRUGS (1)
  1. GEODON [Suspect]
     Dosage: 160 MG, 1X/DAY (AT BEDTIME NIGHTLY)

REACTIONS (3)
  - Renal function test abnormal [Unknown]
  - Glomerular filtration rate abnormal [Unknown]
  - Creatinine urine abnormal [Unknown]
